FAERS Safety Report 8503541-0 (Version None)
Quarter: 2012Q3

REPORT INFORMATION
  Report Type: 
  Country: None (occurrence: None)
  Receive Date: 20120711
  Receipt Date: 20120709
  Transmission Date: 20120928
  Serious: No
  Sender: FDA-Public Use
  Company Number: US-PFIZER INC-2012149847

PATIENT
  Sex: Male
  Weight: 90.703 kg

DRUGS (1)
  1. CHANTIX [Suspect]
     Indication: SMOKING CESSATION THERAPY
     Dosage: UNK
     Dates: start: 20120101

REACTIONS (6)
  - ABDOMINAL DISCOMFORT [None]
  - LETHARGY [None]
  - DISTURBANCE IN ATTENTION [None]
  - INSOMNIA [None]
  - NAUSEA [None]
  - FEELING ABNORMAL [None]
